FAERS Safety Report 20296838 (Version 4)
Quarter: 2024Q4

REPORT INFORMATION
  Report Type: Spontaneous
  Country: US (occurrence: US)
  Receive Date: 20220105
  Receipt Date: 20241017
  Transmission Date: 20250114
  Serious: No
  Sender: ROCHE
  Company Number: US-ROCHE-2903459

PATIENT
  Sex: Male

DRUGS (1)
  1. HEMLIBRA [Suspect]
     Active Substance: EMICIZUMAB-KXWH
     Indication: Factor VIII deficiency
     Dosage: STRENGTH 105 MG/0.7 ML, 60MG/0.4ML
     Route: 058
     Dates: start: 20210730

REACTIONS (2)
  - Haemorrhage [Unknown]
  - Skin laceration [Unknown]

NARRATIVE: CASE EVENT DATE: 20210823
